FAERS Safety Report 4633998-7 (Version None)
Quarter: 2005Q1

REPORT INFORMATION
  Report Type: 
  Country: None (occurrence: None)
  Receive Date: 20050325
  Receipt Date: 20041214
  Transmission Date: 20050727
  Serious: No
  Sender: FDA-Public Use
  Company Number: USA041286167

PATIENT
  Age: 83 Year
  Sex: Female

DRUGS (5)
  1. FORTEO [Suspect]
     Indication: OSTEOPOROSIS
     Dates: start: 20041213
  2. PLAVIX [Concomitant]
  3. DIOVAN [Concomitant]
  4. METHOTREXATE [Concomitant]
  5. DETROL LA [Concomitant]

REACTIONS (1)
  - PRURITUS GENERALISED [None]
